FAERS Safety Report 25020445 (Version 1)
Quarter: 2025Q1

REPORT INFORMATION
  Report Type: Spontaneous
  Country: US (occurrence: US)
  Receive Date: 20250227
  Receipt Date: 20250227
  Transmission Date: 20250409
  Serious: No
  Sender: PRIMUS PHARMACEUTICALS
  Company Number: US-PRIMUS-2024-US-009557

PATIENT
  Age: 88 Year
  Sex: Female

DRUGS (4)
  1. SERNIVO [Suspect]
     Active Substance: BETAMETHASONE DIPROPIONATE
     Indication: Product used for unknown indication
     Route: 061
     Dates: start: 20240123, end: 20240214
  2. ATENOLOL [Concomitant]
     Active Substance: ATENOLOL
  3. TIMOLOL [Concomitant]
     Active Substance: TIMOLOL
  4. ATORVASTATIN [Concomitant]
     Active Substance: ATORVASTATIN

REACTIONS (1)
  - Skin reaction [Unknown]
